FAERS Safety Report 8436492-0 (Version None)
Quarter: 2012Q2

REPORT INFORMATION
  Report Type: 
  Country: None (occurrence: None)
  Receive Date: 20120614
  Receipt Date: 20120607
  Transmission Date: 20120825
  Serious: Yes (Hospitalization)
  Sender: FDA-Public Use
  Company Number: US-GLAXOSMITHKLINE-A0813510A

PATIENT
  Age: 78 Year
  Sex: Female
  Weight: 86.4 kg

DRUGS (5)
  1. VASERETIC [Concomitant]
  2. PREMARIN [Concomitant]
  3. INSULIN [Concomitant]
  4. AVANDIA [Suspect]
     Indication: DIABETES MELLITUS
     Dosage: 8MG PER DAY
     Route: 048
     Dates: start: 20020101
  5. TOPROL-XL [Concomitant]

REACTIONS (5)
  - TRANSIENT ISCHAEMIC ATTACK [None]
  - CEREBROVASCULAR ACCIDENT [None]
  - ARRHYTHMIA [None]
  - HEART INJURY [None]
  - WEIGHT INCREASED [None]
